FAERS Safety Report 22048494 (Version 1)
Quarter: 2023Q1

REPORT INFORMATION
  Report Type: Report from Study
  Country: US (occurrence: US)
  Receive Date: 20230301
  Receipt Date: 20230301
  Transmission Date: 20230417
  Serious: Yes (Hospitalization)
  Sender: FDA-Public Use
  Company Number: US-GLAXOSMITHKLINE-US2023GSK030679

PATIENT

DRUGS (2)
  1. NIRAPARIB [Suspect]
     Active Substance: NIRAPARIB
     Indication: Fallopian tube cancer
     Dosage: 100 MG
     Route: 048
     Dates: start: 20230201, end: 20230212
  2. COPANLISIB [Suspect]
     Active Substance: COPANLISIB
     Indication: Fallopian tube cancer
     Dosage: 45 MG
     Route: 042
     Dates: start: 20230201, end: 20230208

REACTIONS (1)
  - Rash maculo-papular [Recovering/Resolving]

NARRATIVE: CASE EVENT DATE: 20230217
